FAERS Safety Report 4682155-7 (Version None)
Quarter: 2005Q2

REPORT INFORMATION
  Report Type: 
  Country: None (occurrence: None)
  Receive Date: 20050603
  Receipt Date: 20050603
  Transmission Date: 20051028
  Serious: Yes (Life-Threatening)
  Sender: FDA-Public Use
  Company Number: None

PATIENT
  Age: 27 Year
  Sex: Female
  Weight: 56.6996 kg

DRUGS (4)
  1. TETRACYCLINE [Suspect]
     Indication: ACNE
     Dosage: 1-3 PILLS      PER DAY
     Dates: start: 19990101, end: 20040301
  2. TETRACYCLINE [Suspect]
     Indication: EAR PAIN
     Dosage: 1-3 PILLS      PER DAY
     Dates: start: 19990101, end: 20040301
  3. MINOCYLCLINE [Suspect]
     Dosage: 1-3 PILLS    PER DAY
     Dates: start: 19990101, end: 20040301
  4. ANTIBIOTIC [Concomitant]

REACTIONS (1)
  - FUNGAL INFECTION [None]
